FAERS Safety Report 8251863-3 (Version None)
Quarter: 2012Q2

REPORT INFORMATION
  Report Type: 
  Country: None (occurrence: None)
  Receive Date: 20120402
  Receipt Date: 20120328
  Transmission Date: 20120825
  Serious: Yes (Life-Threatening, Other)
  Sender: FDA-Public Use
  Company Number: IT-PFIZER INC-2012080050

PATIENT
  Age: 32 Year
  Sex: Female

DRUGS (1)
  1. PREPIDIL [Suspect]
     Indication: LABOUR INDUCTION
     Dosage: UNK
     Dates: start: 20120218, end: 20120218

REACTIONS (7)
  - SYNCOPE [None]
  - BLOOD LACTATE DEHYDROGENASE INCREASED [None]
  - HYPOCALCAEMIA [None]
  - BRONCHOSPASM [None]
  - OEDEMA GENITAL [None]
  - ANTITHROMBIN III DECREASED [None]
  - HYPOTENSION [None]
